FAERS Safety Report 19211066 (Version 1)
Quarter: 2021Q2

REPORT INFORMATION
  Report Type: Spontaneous
  Country: US (occurrence: US)
  Receive Date: 20210503
  Receipt Date: 20210503
  Transmission Date: 20210717
  Serious: No
  Sender: FDA-Public Use
  Company Number: None

PATIENT
  Age: 67 Year
  Sex: Male

DRUGS (2)
  1. LEVOPHED [Suspect]
     Active Substance: NOREPINEPHRINE BITARTRATE
  2. ALARIS PUMP TUBING [DEVICE] [Suspect]
     Active Substance: DEVICE

REACTIONS (2)
  - Blood pressure decreased [None]
  - Device malfunction [None]

NARRATIVE: CASE EVENT DATE: 20210410
